FAERS Safety Report 26131107 (Version 1)
Quarter: 2025Q4

REPORT INFORMATION
  Report Type: Spontaneous
  Country: US (occurrence: US)
  Receive Date: 20251208
  Receipt Date: 20251208
  Transmission Date: 20260117
  Serious: No
  Sender: SANOFI AVENTIS
  Company Number: US-SA-2025SA365086

PATIENT
  Sex: Female
  Weight: 70.45 kg

DRUGS (8)
  1. DUPIXENT [Suspect]
     Active Substance: DUPILUMAB
     Indication: Urticaria
     Dosage: 300 MG, QOW
     Route: 058
  2. MAXALT [Concomitant]
     Active Substance: RIZATRIPTAN BENZOATE
  3. METFORMIN [Concomitant]
     Active Substance: METFORMIN HYDROCHLORIDE
  4. VYVANSE [Concomitant]
     Active Substance: LISDEXAMFETAMINE DIMESYLATE
  5. HYDROCHLOROTHIAZIDE\LOSARTAN [Concomitant]
     Active Substance: HYDROCHLOROTHIAZIDE\LOSARTAN
  6. HYDROCHLOROTHIAZIDE [Concomitant]
     Active Substance: HYDROCHLOROTHIAZIDE
  7. PEPCID [Concomitant]
     Active Substance: FAMOTIDINE
  8. ESTRADIOL [Concomitant]
     Active Substance: ESTRADIOL
     Dosage: TWICE WEEKLY

REACTIONS (2)
  - Injection site pain [Unknown]
  - Product use in unapproved indication [Unknown]
